FAERS Safety Report 9335128 (Version 1)
Quarter: 2013Q2

REPORT INFORMATION
  Report Type: Report from Study
  Country: US (occurrence: US)
  Receive Date: 20130606
  Receipt Date: 20130606
  Transmission Date: 20140414
  Serious: Yes (Death, Hospitalization)
  Sender: FDA-Public Use
  Company Number: US-GLAXOSMITHKLINE-A1025759A

PATIENT
  Age: 57 Year
  Sex: Male
  Weight: 85.9 kg

DRUGS (24)
  1. MELPHALAN [Suspect]
     Indication: AMYLOIDOSIS
     Route: 042
     Dates: end: 20130404
  2. BORTEZOMIB [Suspect]
     Indication: AMYLOIDOSIS
     Dosage: 1.3MGM2 CYCLIC
     Route: 042
     Dates: start: 20130204, end: 20130408
  3. DEXAMETHASONE [Suspect]
     Indication: AMYLOIDOSIS
     Dosage: 20MG CYCLIC
     Route: 042
     Dates: start: 20130204, end: 20130307
  4. SINGULAIR [Concomitant]
  5. FLOMAX [Concomitant]
  6. EFFEXOR [Concomitant]
  7. NASONEX [Concomitant]
  8. DULERA [Concomitant]
  9. ALBUTEROL SULFATE [Concomitant]
  10. CIPRODEX [Concomitant]
  11. LORAZEPAM [Concomitant]
  12. PANTOPRAZOLE SODIUM [Concomitant]
  13. FUROSEMIDE [Concomitant]
  14. HYDROXYZINE HYDROCHLORIDE [Concomitant]
  15. DIFLUCAN [Concomitant]
  16. ACYCLOVIR [Concomitant]
  17. PROCHLORPERAZINE MALEATE [Concomitant]
  18. PREVIDENT [Concomitant]
  19. CIPROFLOXACIN HYDROCHLORIDE [Concomitant]
  20. ALLOPURINOL [Concomitant]
  21. MIDODRINE HYDROCHLORIDE [Concomitant]
  22. ZADITOR [Concomitant]
  23. GUAIFENESIN + CODEINE [Concomitant]
  24. CODEINE [Concomitant]

REACTIONS (2)
  - Febrile neutropenia [Not Recovered/Not Resolved]
  - Death [Fatal]
